FAERS Safety Report 10663612 (Version 3)
Quarter: 2015Q1

REPORT INFORMATION
  Report Type: Report from Study
  Country: DE (occurrence: DE)
  Receive Date: 20141219
  Receipt Date: 20150227
  Transmission Date: 20150720
  Serious: Yes (Hospitalization)
  Sender: FDA-Public Use
  Company Number: DE-ROCHE-1510711

PATIENT
  Age: 47 Year
  Sex: Female

DRUGS (13)
  1. RITUXIMAB [Suspect]
     Active Substance: RITUXIMAB
     Indication: RHEUMATOID ARTHRITIS
     Dosage: ON 17/APR/2014, LAST DOSE OF RITUXIMAB WAS TAKEN
     Route: 042
  2. SORTIS [Concomitant]
     Active Substance: ATORVASTATIN
  3. ENAHEXAL [Concomitant]
     Active Substance: ENALAPRIL MALEATE
  4. BELOC-ZOK MITE [Concomitant]
     Active Substance: METOPROLOL SUCCINATE
  5. MARCUMAR [Concomitant]
     Active Substance: PHENPROCOUMON
     Route: 065
  6. LANTUS [Concomitant]
     Active Substance: INSULIN GLARGINE
  7. IBUPROFEN. [Concomitant]
     Active Substance: IBUPROFEN
  8. ZANTAC [Concomitant]
     Active Substance: RANITIDINE HYDROCHLORIDE
  9. PANTOZOL [Concomitant]
     Active Substance: PANTOPRAZOLE SODIUM
  10. DEKRISTOL [Concomitant]
     Active Substance: CHOLECALCIFEROL
  11. HUMALOG [Concomitant]
     Active Substance: INSULIN LISPRO
  12. ALENDRONAT [Concomitant]
     Active Substance: ALENDRONATE SODIUM
  13. DIAZEPAM. [Concomitant]
     Active Substance: DIAZEPAM
     Route: 065

REACTIONS (1)
  - Uterine leiomyoma [Not Recovered/Not Resolved]

NARRATIVE: CASE EVENT DATE: 20141009
